FAERS Safety Report 8507650 (Version 3)
Quarter: 2014Q2

REPORT INFORMATION
  Report Type: Spontaneous
  Country: US (occurrence: US)
  Receive Date: 20120412
  Receipt Date: 20140414
  Transmission Date: 20141212
  Serious: No
  Sender: FDA-Public Use
  Company Number: US-ASTRAZENECA-2011SE12960

PATIENT
  Age: 79 Year
  Sex: Female
  Weight: 81.6 kg

DRUGS (5)
  1. NEXIUM [Suspect]
     Indication: GASTROOESOPHAGEAL REFLUX DISEASE
     Dosage: QD
     Route: 048
     Dates: start: 2010
  2. NEXIUM [Suspect]
     Indication: GASTROOESOPHAGEAL REFLUX DISEASE
     Route: 048
  3. HYDROCO-ACETAMIN [Concomitant]
     Indication: BACK PAIN
     Dosage: 10/5MG QD
     Route: 048
  4. NORCO [Concomitant]
     Indication: PAIN
     Dosage: 10/25 MG UNK
     Route: 048
  5. ALEVE [Concomitant]
     Indication: PAIN
     Dosage: UNK QID
     Route: 048

REACTIONS (16)
  - Gastrooesophageal reflux disease [Unknown]
  - Dyspepsia [Unknown]
  - Aphagia [Unknown]
  - Condition aggravated [Unknown]
  - Anxiety [Unknown]
  - Back pain [Unknown]
  - Feeling of relaxation [Unknown]
  - Adverse event [Unknown]
  - Arthritis [Unknown]
  - Abdominal pain upper [Unknown]
  - Arthralgia [Unknown]
  - Malaise [Unknown]
  - Somnolence [Unknown]
  - Vomiting [Unknown]
  - Drug dose omission [Unknown]
  - Intentional product misuse [Unknown]
